FAERS Safety Report 21957361 (Version 1)
Quarter: 2023Q1

REPORT INFORMATION
  Report Type: Spontaneous
  Country: US (occurrence: US)
  Receive Date: 20230206
  Receipt Date: 20230206
  Transmission Date: 20230418
  Serious: No
  Sender: FDA-Public Use
  Company Number: US-AMNEAL PHARMACEUTICALS-2022-AMRX-03716

PATIENT
  Age: 65 Year
  Sex: Male
  Weight: 73.469 kg

DRUGS (1)
  1. BUPRENORPHINE TRANSDERMAL SYSTEM [Suspect]
     Active Substance: BUPRENORPHINE
     Indication: Osteoarthritis
     Dosage: 20 MCG/HOUR
     Route: 062

REACTIONS (6)
  - Burning sensation [Unknown]
  - Dermatitis contact [Unknown]
  - Medical device site pain [Unknown]
  - Pruritus [Unknown]
  - Skin irritation [Unknown]
  - Product substitution issue [Unknown]

NARRATIVE: CASE EVENT DATE: 20220915
